FAERS Safety Report 14942609 (Version 1)
Quarter: 2018Q2

REPORT INFORMATION
  Report Type: Spontaneous
  Country: US (occurrence: US)
  Receive Date: 20180528
  Receipt Date: 20180528
  Transmission Date: 20180711
  Serious: Yes (Other)
  Sender: FDA-Public Use
  Company Number: US-BEH-2018090952

PATIENT
  Age: 65 Year
  Sex: Male
  Weight: 81.63 kg

DRUGS (16)
  1. OSCAL [Concomitant]
     Active Substance: CALCIUM CARBONATE
  2. DOCUSATE [Concomitant]
     Active Substance: DOCUSATE
  3. SODIUM CHLORIDE. [Concomitant]
     Active Substance: SODIUM CHLORIDE
  4. EPINEPHRINE. [Concomitant]
     Active Substance: EPINEPHRINE
  5. TACROLIMUS. [Concomitant]
     Active Substance: TACROLIMUS
  6. PRIVIGEN [Suspect]
     Active Substance: HUMAN IMMUNOGLOBULIN G
     Dosage: 40 G, QMT
     Route: 042
     Dates: start: 20170905, end: 20180320
  7. ACETAMINOPHEN. [Concomitant]
     Active Substance: ACETAMINOPHEN
  8. PREDNISONE. [Concomitant]
     Active Substance: PREDNISONE
  9. PRIVIGEN [Suspect]
     Active Substance: HUMAN IMMUNOGLOBULIN G
     Indication: LUNG TRANSPLANT REJECTION
     Dosage: UNK
     Route: 042
  10. BACTRIM [Concomitant]
     Active Substance: SULFAMETHOXAZOLE\TRIMETHOPRIM
  11. PANTOPRAZOLE [Concomitant]
     Active Substance: PANTOPRAZOLE
  12. RAPAMUNE [Concomitant]
     Active Substance: SIROLIMUS
  13. VALGANCICLOVIR. [Concomitant]
     Active Substance: VALGANCICLOVIR
  14. METOPROLOL SUCCINATE. [Concomitant]
     Active Substance: METOPROLOL SUCCINATE
  15. DIPHENHYDRAMINE. [Concomitant]
     Active Substance: DIPHENHYDRAMINE
  16. METHYLPREDNISOLONE. [Concomitant]
     Active Substance: METHYLPREDNISOLONE

REACTIONS (1)
  - Lung transplant [Unknown]
